FAERS Safety Report 8198579-X (Version None)
Quarter: 2012Q1

REPORT INFORMATION
  Report Type: 
  Country: None (occurrence: None)
  Receive Date: 20120309
  Receipt Date: 20120106
  Transmission Date: 20120608
  Serious: Yes (Other)
  Sender: FDA-Public Use
  Company Number: US-AMGEN-USASP2012000859

PATIENT
  Age: 89 Year
  Sex: Female

DRUGS (11)
  1. NAMENDA [Concomitant]
  2. PROLIA [Suspect]
  3. FOLIC ACID [Concomitant]
  4. DIOVAN [Concomitant]
  5. LEVOXYL [Concomitant]
     Indication: HYPOTHYROIDISM
  6. DITROPAN [Concomitant]
  7. NUCYNTA [Concomitant]
  8. DILTIAZEM HCL [Concomitant]
  9. PROLIA [Suspect]
     Indication: OSTEOPOROSIS POSTMENOPAUSAL
     Dosage: UNK UNK, Q6MO
     Dates: start: 20110301
  10. SPIRONOLACTONE [Concomitant]
  11. LASIX [Concomitant]

REACTIONS (1)
  - CELLULITIS [None]
